FAERS Safety Report 6948921-X (Version None)
Quarter: 2010Q3

REPORT INFORMATION
  Report Type: 
  Country: None (occurrence: None)
  Receive Date: 20100828
  Receipt Date: 20091123
  Transmission Date: 20110219
  Serious: No
  Sender: FDA-Public Use
  Company Number: US-ABBOTT-09P-163-0610201-00

PATIENT
  Sex: Female
  Weight: 90.8 kg

DRUGS (7)
  1. NIASPAN [Suspect]
     Indication: TRANSIENT ISCHAEMIC ATTACK
     Dates: start: 20090911
  2. IBUPROFEN [Concomitant]
     Indication: PRODUCT USED FOR UNKNOWN INDICATION
     Dosage: USED SECOND NIGHT BEFORE NIASPAN
     Route: 048
  3. LISINOPRIL [Concomitant]
     Indication: PRODUCT USED FOR UNKNOWN INDICATION
     Route: 048
  4. GENERIC PRAVACHOL [Concomitant]
     Indication: PRODUCT USED FOR UNKNOWN INDICATION
     Route: 048
  5. SYNTHROID [Concomitant]
     Indication: PRODUCT USED FOR UNKNOWN INDICATION
  6. NORVASC [Concomitant]
     Indication: PRODUCT USED FOR UNKNOWN INDICATION
  7. FISH OIL [Concomitant]
     Indication: PRODUCT USED FOR UNKNOWN INDICATION
     Route: 048

REACTIONS (6)
  - ERYTHEMA [None]
  - FEELING HOT [None]
  - FLUSHING [None]
  - POLLAKIURIA [None]
  - PRURITUS [None]
  - SKIN BURNING SENSATION [None]
